FAERS Safety Report 25673163 (Version 2)
Quarter: 2025Q3

REPORT INFORMATION
  Report Type: Spontaneous
  Country: US (occurrence: US)
  Receive Date: 20250813
  Receipt Date: 20250903
  Transmission Date: 20251021
  Serious: Yes (Death, Hospitalization)
  Sender: MDD OPERATIONS
  Company Number: US-MDD US Operations-MDD202508-002857

PATIENT
  Age: 71 Year
  Sex: Female

DRUGS (1)
  1. APOKYN [Suspect]
     Active Substance: APOMORPHINE HYDROCHLORIDE
     Indication: Parkinson^s disease

REACTIONS (3)
  - Death [Fatal]
  - Asthenia [Unknown]
  - Adverse event [Unknown]

NARRATIVE: CASE EVENT DATE: 20250807
